FAERS Safety Report 25525443 (Version 1)
Quarter: 2025Q3

REPORT INFORMATION
  Report Type: Spontaneous
  Country: US (occurrence: US)
  Receive Date: 20250707
  Receipt Date: 20250707
  Transmission Date: 20251020
  Serious: Yes (Other)
  Sender: PFIZER
  Company Number: US-PFIZER INC-202500135005

PATIENT
  Age: 63 Year
  Sex: Female
  Weight: 75.283 kg

DRUGS (4)
  1. PEMETREXED [Suspect]
     Active Substance: PEMETREXED
     Indication: Lung neoplasm malignant
  2. PEMETREXED [Suspect]
     Active Substance: PEMETREXED
     Indication: Bone cancer
  3. PEMBROLIZUMAB [Suspect]
     Active Substance: PEMBROLIZUMAB
     Indication: Lung neoplasm malignant
  4. PEMBROLIZUMAB [Suspect]
     Active Substance: PEMBROLIZUMAB
     Indication: Bone cancer

REACTIONS (2)
  - Lung neoplasm malignant [Unknown]
  - Malignant neoplasm progression [Unknown]
